FAERS Safety Report 7481977-7 (Version None)
Quarter: 2011Q2

REPORT INFORMATION
  Report Type: 
  Country: None (occurrence: None)
  Receive Date: 20110516
  Receipt Date: 20110509
  Transmission Date: 20111010
  Serious: Yes (Death, Other)
  Sender: FDA-Public Use
  Company Number: US-TEVA-280782USA

PATIENT
  Age: 37 Year
  Sex: Male

DRUGS (3)
  1. CISPLATIN [Suspect]
  2. BLEOMYCIN SULFATE [Suspect]
  3. ETOPOSIDE [Suspect]

REACTIONS (2)
  - CORONARY ARTERY THROMBOSIS [None]
  - SUDDEN CARDIAC DEATH [None]
